FAERS Safety Report 12389949 (Version 1)
Quarter: 2016Q2

REPORT INFORMATION
  Report Type: Spontaneous
  Country: BR (occurrence: BR)
  Receive Date: 20160520
  Receipt Date: 20160520
  Transmission Date: 20160815
  Serious: Yes (Other)
  Sender: FDA-Public Use
  Company Number: BR-JNJFOC-20141110979

PATIENT
  Age: 61 Year
  Sex: Female
  Weight: 64 kg

DRUGS (16)
  1. TRAMADOL. [Concomitant]
     Active Substance: TRAMADOL
     Indication: PAIN
     Route: 065
  2. PREBICTAL [Concomitant]
     Active Substance: PREGABALIN
     Indication: PAIN
     Route: 065
  3. PARACETAMOL [Concomitant]
     Active Substance: ACETAMINOPHEN
     Indication: PAIN
     Route: 065
     Dates: end: 201411
  4. OMEPRAZOLE. [Concomitant]
     Active Substance: OMEPRAZOLE
     Indication: GASTROINTESTINAL DISORDER THERAPY
     Route: 065
  5. PREDNISONE. [Concomitant]
     Active Substance: PREDNISONE
     Indication: PAIN
     Route: 065
  6. FOLIC ACID. [Concomitant]
     Active Substance: FOLIC ACID
     Indication: VITAMIN SUPPLEMENTATION
     Route: 065
  7. PREBICTAL [Concomitant]
     Active Substance: PREGABALIN
     Indication: MUSCLE RELAXANT THERAPY
     Route: 065
  8. REMICADE [Suspect]
     Active Substance: INFLIXIMAB
     Indication: PSORIATIC ARTHROPATHY
     Dosage: DOSAGE 100 MG
     Route: 042
  9. REMICADE [Suspect]
     Active Substance: INFLIXIMAB
     Indication: PSORIATIC ARTHROPATHY
     Route: 042
     Dates: start: 20140910
  10. REMICADE [Suspect]
     Active Substance: INFLIXIMAB
     Indication: RHEUMATOID ARTHRITIS
     Route: 042
     Dates: start: 20140910
  11. STELARA [Suspect]
     Active Substance: USTEKINUMAB
     Indication: PRODUCT USED FOR UNKNOWN INDICATION
     Route: 058
     Dates: start: 20150424
  12. VENLAFAXINE [Concomitant]
     Active Substance: VENLAFAXINE HYDROCHLORIDE
     Indication: DEPRESSION
     Route: 065
  13. REMICADE [Suspect]
     Active Substance: INFLIXIMAB
     Indication: RHEUMATOID ARTHRITIS
     Dosage: DOSAGE 100 MG
     Route: 042
  14. STELARA [Suspect]
     Active Substance: USTEKINUMAB
     Indication: PRODUCT USED FOR UNKNOWN INDICATION
     Route: 058
     Dates: start: 20150624
  15. METHOTREXATE [Concomitant]
     Active Substance: METHOTREXATE
     Indication: RHEUMATOID ARTHRITIS
     Route: 065
  16. SINVASTACOR [Concomitant]
     Active Substance: SIMVASTATIN
     Indication: BLOOD CHOLESTEROL
     Route: 065

REACTIONS (35)
  - Depression [Unknown]
  - Blindness [Unknown]
  - Malaise [Unknown]
  - Eating disorder [Unknown]
  - Infusion related reaction [Unknown]
  - Anger [Unknown]
  - Scar [Unknown]
  - Movement disorder [Unknown]
  - Fear [Unknown]
  - Burning sensation [Unknown]
  - Skin discolouration [Unknown]
  - Immune system disorder [Unknown]
  - Hypertension [Recovering/Resolving]
  - Blister [Unknown]
  - Off label use [Unknown]
  - Medication error [Unknown]
  - Insomnia [Unknown]
  - Asthenia [Unknown]
  - Hand deformity [Unknown]
  - Product use issue [Unknown]
  - Musculoskeletal stiffness [Unknown]
  - Fatigue [Unknown]
  - Pain [Recovering/Resolving]
  - Nausea [Unknown]
  - Sensory disturbance [Unknown]
  - Varicose ulceration [Recovered/Resolved]
  - Haemorrhage [Unknown]
  - Thermal burn [Unknown]
  - Erythema [Unknown]
  - Onychomadesis [Unknown]
  - Activities of daily living impaired [Unknown]
  - Sensory loss [Unknown]
  - Headache [Unknown]
  - Drug ineffective [Unknown]
  - Dizziness [Unknown]

NARRATIVE: CASE EVENT DATE: 201409
